FAERS Safety Report 21469569 (Version 1)
Quarter: 2022Q4

REPORT INFORMATION
  Report Type: Report from Study
  Country: US (occurrence: US)
  Receive Date: 20221018
  Receipt Date: 20221018
  Transmission Date: 20230113
  Serious: Yes (Death, Other)
  Sender: FDA-Public Use
  Company Number: US-UNITED THERAPEUTICS-UNT-2022-023954

PATIENT
  Age: 89 Year
  Sex: Male

DRUGS (9)
  1. TREPROSTINIL [Suspect]
     Active Substance: TREPROSTINIL
     Indication: Pulmonary hypertension
     Dosage: 16 ?G, QID
     Dates: start: 20221007
  2. TREPROSTINIL [Suspect]
     Active Substance: TREPROSTINIL
     Indication: Lung disorder
  3. TREPROSTINIL [Suspect]
     Active Substance: TREPROSTINIL
     Indication: Hypoxia
  4. TYVASO DPI [Suspect]
     Active Substance: TREPROSTINIL
     Indication: Pulmonary hypertension
     Dosage: UNK
  5. TYVASO DPI [Suspect]
     Active Substance: TREPROSTINIL
     Indication: Lung disorder
  6. TYVASO DPI [Suspect]
     Active Substance: TREPROSTINIL
     Indication: Hypoxia
  7. TYVASO DPI [Suspect]
     Active Substance: TREPROSTINIL
     Indication: Pulmonary hypertension
     Dosage: UNK
  8. TYVASO DPI [Suspect]
     Active Substance: TREPROSTINIL
     Indication: Lung disorder
  9. TYVASO DPI [Suspect]
     Active Substance: TREPROSTINIL
     Indication: Hypoxia

REACTIONS (10)
  - Death [Fatal]
  - Cough [Unknown]
  - Dizziness [Unknown]
  - Dysphagia [Unknown]
  - Dizziness postural [Unknown]
  - Productive cough [Unknown]
  - Decreased appetite [Unknown]
  - Lung disorder [Unknown]
  - Hypoxia [Unknown]
  - Off label use [Unknown]

NARRATIVE: CASE EVENT DATE: 20221007
